FAERS Safety Report 8823783 (Version 1)
Quarter: 2012Q4

REPORT INFORMATION
  Report Type: 
  Country: US (occurrence: US)
  Receive Date: 20121003
  Receipt Date: 20121003
  Transmission Date: 20130627
  Serious: No
  Sender: FDA-Public Use
  Company Number: US-ASTRAZENECA-2012SE65566

PATIENT
  Age: 57 Year
  Sex: Female

DRUGS (2)
  1. SEROQUEL XR [Suspect]
     Indication: BIPOLAR DISORDER
     Route: 048
  2. SAPHRIS [Concomitant]
     Indication: SLEEP DISORDER

REACTIONS (6)
  - Anxiety [Unknown]
  - Panic reaction [Unknown]
  - Insomnia [Unknown]
  - Mania [Unknown]
  - Impaired work ability [Unknown]
  - Drug dose omission [Unknown]
